FAERS Safety Report 26002367 (Version 1)
Quarter: 2025Q4

REPORT INFORMATION
  Report Type: Spontaneous
  Country: US (occurrence: US)
  Receive Date: 20251105
  Receipt Date: 20251105
  Transmission Date: 20260117
  Serious: Yes (Other)
  Sender: NEPHRON STERILE COMPOUNDING CENTER, LLC (NSCC), WEST COLUMBIA, SC
  Company Number: US-Nephron Sterile Compounding Center-2187981

PATIENT
  Age: 17 Year
  Weight: 60.2 kg

DRUGS (6)
  1. DEL NIDO CARDIOPLEGIA [Suspect]
     Active Substance: LIDOCAINE HYDROCHLORIDE\POTASSIUM CHLORIDE\SODIUM BICARBONATE
     Indication: Aortic aneurysm repair
     Dates: start: 20251020, end: 20251020
  2. FENTANYL [Concomitant]
     Active Substance: FENTANYL
  3. ISOFLURANE [Concomitant]
     Active Substance: ISOFLURANE
  4. ROCURONIUM [Concomitant]
     Active Substance: ROCURONIUM BROMIDE
  5. DEXMEDETOMIDINE [Concomitant]
     Active Substance: DEXMEDETOMIDINE
  6. MIDAZOLAM [Concomitant]
     Active Substance: MIDAZOLAM

REACTIONS (1)
  - Therapeutic product effect decreased [Recovered/Resolved]

NARRATIVE: CASE EVENT DATE: 20251020
